FAERS Safety Report 20826062 (Version 1)
Quarter: 2022Q2

REPORT INFORMATION
  Report Type: Spontaneous
  Country: US (occurrence: US)
  Receive Date: 20220513
  Receipt Date: 20220513
  Transmission Date: 20220720
  Serious: Yes (Other)
  Sender: FDA-Public Use
  Company Number: US-BRISTOL-MYERS SQUIBB COMPANY-2022-025530

PATIENT
  Age: 74 Year
  Sex: Male
  Weight: 99.79 kg

DRUGS (1)
  1. POMALYST [Suspect]
     Active Substance: POMALIDOMIDE
     Indication: Product used for unknown indication
     Dosage: 21 DAYS ON 7 DAYS OFF
     Route: 048
     Dates: start: 20181113

REACTIONS (1)
  - Rib fracture [Recovered/Resolved with Sequelae]

NARRATIVE: CASE EVENT DATE: 20220311
